FAERS Safety Report 23439020 (Version 1)
Quarter: 2024Q1

REPORT INFORMATION
  Report Type: Spontaneous
  Country: ES (occurrence: ES)
  Receive Date: 20240124
  Receipt Date: 20240124
  Transmission Date: 20240409
  Serious: Yes (Hospitalization)
  Sender: FDA-Public Use
  Company Number: ES-JNJFOC-20240150767

PATIENT
  Sex: Female

DRUGS (1)
  1. RILPIVIRINE [Suspect]
     Active Substance: RILPIVIRINE
     Indication: Product used for unknown indication
     Route: 030

REACTIONS (4)
  - Chest discomfort [Unknown]
  - Headache [Unknown]
  - Back pain [Unknown]
  - Incorrect route of product administration [Unknown]
